FAERS Safety Report 10717804 (Version 1)
Quarter: 2015Q1

REPORT INFORMATION
  Report Type: Report from Study
  Country: US (occurrence: US)
  Receive Date: 20150116
  Receipt Date: 20150116
  Transmission Date: 20150721
  Serious: Yes (Hospitalization, Other)
  Sender: FDA-Public Use
  Company Number: US-ABBVIE-15P-163-1333743-00

PATIENT
  Age: 44 Year
  Sex: Female
  Weight: 112.59 kg

DRUGS (1)
  1. LUPRON DEPOT [Suspect]
     Active Substance: LEUPROLIDE ACETATE
     Indication: UTERINE LEIOMYOMA
     Route: 030
     Dates: start: 20140807, end: 20141105

REACTIONS (4)
  - Haemorrhage [Recovered/Resolved]
  - Pelvic pain [Recovered/Resolved]
  - Anaemia [Recovered/Resolved]
  - Hysterectomy [Recovered/Resolved]

NARRATIVE: CASE EVENT DATE: 20141224
